FAERS Safety Report 13382662 (Version 1)
Quarter: 2017Q1

REPORT INFORMATION
  Report Type: Spontaneous
  Country: BR (occurrence: BR)
  Receive Date: 20170329
  Receipt Date: 20170329
  Transmission Date: 20170429
  Serious: Yes (Other)
  Sender: FDA-Public Use
  Company Number: BR-ROCHE-1911653

PATIENT
  Sex: Male

DRUGS (2)
  1. OXACILLIN [Suspect]
     Active Substance: OXACILLIN SODIUM
     Indication: LUNG ABSCESS
     Route: 065
  2. ROCEFIN [Suspect]
     Active Substance: CEFTRIAXONE SODIUM
     Indication: LUNG ABSCESS
     Route: 042

REACTIONS (1)
  - Lung abscess [Recovering/Resolving]
